FAERS Safety Report 21337673 (Version 1)
Quarter: 2022Q3

REPORT INFORMATION
  Report Type: Spontaneous
  Country: US (occurrence: None)
  Receive Date: 20220915
  Receipt Date: 20220915
  Transmission Date: 20221027
  Serious: Yes (Other)
  Sender: FDA-Public Use
  Company Number: None

PATIENT
  Age: 49 Year
  Sex: Female
  Weight: 103.5 kg

DRUGS (6)
  1. FLUCONAZOLE [Suspect]
     Active Substance: FLUCONAZOLE
     Indication: Fungal skin infection
     Dosage: OTHER QUANTITY : 4 CAPSULE(S);?OTHER FREQUENCY : ONCE A WEEK FOR 4;?
     Route: 048
     Dates: start: 20220826, end: 20220914
  2. OLMESARTAN [Concomitant]
     Active Substance: OLMESARTAN
  3. HYDROCHLOROTHIAZIDE [Concomitant]
     Active Substance: HYDROCHLOROTHIAZIDE
  4. APPLE CIDER PILLS [Concomitant]
  5. VITAMIN D PILL [Concomitant]
  6. BLOOD SUGAR CONTROL PILLS [Concomitant]

REACTIONS (1)
  - Rectal haemorrhage [None]

NARRATIVE: CASE EVENT DATE: 20220915
